FAERS Safety Report 13654621 (Version 1)
Quarter: 2017Q2

REPORT INFORMATION
  Report Type: Spontaneous
  Country: US (occurrence: US)
  Receive Date: 20170615
  Receipt Date: 20170615
  Transmission Date: 20170830
  Serious: Yes (Hospitalization)
  Sender: FDA-Public Use
  Company Number: US-ROCHE-1950671

PATIENT
  Age: 57 Year
  Sex: Female

DRUGS (1)
  1. ACTEMRA [Suspect]
     Active Substance: TOCILIZUMAB
     Indication: RHEUMATOID ARTHRITIS
     Dosage: STRENGTH 162MG/0.9ML
     Route: 058
     Dates: start: 20170501, end: 20170526

REACTIONS (1)
  - Asthma [Recovered/Resolved]

NARRATIVE: CASE EVENT DATE: 20170526
